FAERS Safety Report 19737447 (Version 1)
Quarter: 2021Q3

REPORT INFORMATION
  Report Type: Spontaneous
  Country: US (occurrence: US)
  Receive Date: 20210821
  Receipt Date: 20210821
  Transmission Date: 20211014
  Serious: Yes (Hospitalization)
  Sender: FDA-Public Use
  Company Number: None

PATIENT
  Age: 65 Year
  Sex: Female
  Weight: 59.1 kg

DRUGS (1)
  1. DOXIL [Suspect]
     Active Substance: DOXORUBICIN HYDROCHLORIDE
     Dates: start: 20150815, end: 20170114

REACTIONS (4)
  - Oedema peripheral [None]
  - Dyspnoea [None]
  - Urinary tract infection fungal [None]
  - Tremor [None]

NARRATIVE: CASE EVENT DATE: 20170112
